FAERS Safety Report 6168861-6 (Version None)
Quarter: 2009Q2

REPORT INFORMATION
  Report Type: 
  Country: None (occurrence: None)
  Receive Date: 20090424
  Receipt Date: 20090424
  Transmission Date: 20091009
  Serious: No
  Sender: FDA-Public Use
  Company Number: None

PATIENT
  Sex: Male
  Weight: 76.2043 kg

DRUGS (1)
  1. LEVAQUIN [Suspect]
     Indication: ANTIBIOTIC PROPHYLAXIS
     Dosage: 500 MG ONE DOSE PO
     Route: 048
     Dates: start: 20090309, end: 20090309

REACTIONS (2)
  - TENDON PAIN [None]
  - TENDON RUPTURE [None]
